FAERS Safety Report 20782157 (Version 3)
Quarter: 2022Q2

REPORT INFORMATION
  Report Type: Spontaneous
  Country: JP (occurrence: JP)
  Receive Date: 20220504
  Receipt Date: 20220628
  Transmission Date: 20220721
  Serious: Yes (Hospitalization)
  Sender: FDA-Public Use
  Company Number: JP-JNJFOC-20220330093

PATIENT
  Age: 72 Year
  Sex: Male
  Weight: 83 kg

DRUGS (5)
  1. TREMFYA [Suspect]
     Active Substance: GUSELKUMAB
     Indication: Palmoplantar pustulosis
     Dosage: EVERY 4 TO 8 WEEKS
     Route: 058
     Dates: start: 20190401, end: 20211201
  2. TREMFYA [Suspect]
     Active Substance: GUSELKUMAB
  3. TREMFYA [Suspect]
     Active Substance: GUSELKUMAB
  4. UNSPECIFIED INGREDIENT [Suspect]
     Active Substance: UNSPECIFIED INGREDIENT
     Indication: COVID-19 prophylaxis
     Dosage: DOSE UNKNOWN
     Route: 065
     Dates: start: 20220214, end: 20220214
  5. ISONIAZID [Concomitant]
     Active Substance: ISONIAZID
     Route: 048
     Dates: start: 20190214

REACTIONS (6)
  - Renal impairment [Recovered/Resolved with Sequelae]
  - Physical deconditioning [Not Recovered/Not Resolved]
  - Asthenia [Recovered/Resolved with Sequelae]
  - Appendicitis [Recovering/Resolving]
  - Aspartate aminotransferase increased [Recovering/Resolving]
  - Alanine aminotransferase increased [Recovering/Resolving]

NARRATIVE: CASE EVENT DATE: 20190617
